FAERS Safety Report 7473812-8 (Version None)
Quarter: 2011Q2

REPORT INFORMATION
  Report Type: 
  Country: None (occurrence: None)
  Receive Date: 20110511
  Receipt Date: 20110502
  Transmission Date: 20111010
  Serious: Yes (Hospitalization, Other)
  Sender: FDA-Public Use
  Company Number: US-ASTRAZENECA-2010SE60717

PATIENT
  Age: 49 Year
  Sex: Female

DRUGS (3)
  1. TRAMADOL HYDROCHLORIDE [Concomitant]
  2. NEXIUM [Suspect]
     Route: 048
  3. DARVOCET [Suspect]
     Route: 065

REACTIONS (8)
  - PNEUMONIA [None]
  - SPINAL COLUMN INJURY [None]
  - MUSCULOSKELETAL DISCOMFORT [None]
  - CATHETERISATION CARDIAC [None]
  - CARDIAC DISORDER [None]
  - FALL [None]
  - HEADACHE [None]
  - ARTHRITIS [None]
